FAERS Safety Report 23726230 (Version 1)
Quarter: 2024Q2

REPORT INFORMATION
  Report Type: Other
  Country: IR (occurrence: IR)
  Receive Date: 20240410
  Receipt Date: 20240410
  Transmission Date: 20240716
  Serious: Yes (Other)
  Sender: FDA-Public Use
  Company Number: IR-ALVOGEN-2024093294

PATIENT
  Age: 31 Year
  Sex: Male

DRUGS (2)
  1. AMPHETAMINE [Suspect]
     Active Substance: AMPHETAMINE
     Indication: Drug abuse
     Dosage: SINCE 10 YEARS
  2. HEROIN [Concomitant]
     Active Substance: DIAMORPHINE
     Indication: Drug abuse
     Dosage: SINCE 10 YEARS

REACTIONS (2)
  - Opportunistic infection [Recovered/Resolved]
  - Drug abuse [Unknown]
